FAERS Safety Report 9061651 (Version 1)
Quarter: 2013Q1

REPORT INFORMATION
  Report Type: Spontaneous
  Country: US (occurrence: None)
  Receive Date: 20130211
  Receipt Date: 20130211
  Transmission Date: 20140127
  Serious: Yes (Hospitalization)
  Sender: FDA-Public Use
  Company Number: None

PATIENT
  Age: 67 Year
  Sex: Male
  Weight: 99.7 kg

DRUGS (2)
  1. HALOPERIDOL [Suspect]
     Indication: DEMENTIA
     Route: 048
     Dates: start: 20120825, end: 20120827
  2. HALOPERIDOL [Suspect]
     Indication: DEMENTIA
     Dosage: AM
     Route: 048
     Dates: start: 20120825, end: 20120827

REACTIONS (2)
  - Altered state of consciousness [None]
  - Neuroleptic malignant syndrome [None]
